FAERS Safety Report 23322319 (Version 1)
Quarter: 2023Q4

REPORT INFORMATION
  Report Type: Spontaneous
  Country: US (occurrence: None)
  Receive Date: 20231220
  Receipt Date: 20231220
  Transmission Date: 20240109
  Serious: No
  Sender: FDA-Public Use
  Company Number: None

PATIENT
  Age: 61 Year
  Sex: Male

DRUGS (11)
  1. REPATHA [Suspect]
     Active Substance: EVOLOCUMAB
     Indication: Cardiovascular disorder
     Dosage: OTHER FREQUENCY : Q2WEEKS;?
     Route: 058
     Dates: start: 20231207, end: 20231218
  2. BUPROPION [Concomitant]
     Active Substance: BUPROPION
  3. CYMBALTA [Concomitant]
     Active Substance: DULOXETINE HYDROCHLORIDE
  4. DICLOFENAC GEL [Concomitant]
  5. ELAVIL [Concomitant]
     Active Substance: AMITRIPTYLINE HYDROCHLORIDE
  6. FLUTICASONE NASAL SP [Concomitant]
  7. LISINOPRIL [Concomitant]
     Active Substance: LISINOPRIL
  8. NEURONTIN [Concomitant]
     Active Substance: GABAPENTIN
  9. SKELAXIN [Concomitant]
     Active Substance: METAXALONE
  10. TRILIPIX [Concomitant]
     Active Substance: FENOFIBRIC ACID
  11. PRALUENT [Concomitant]
     Active Substance: ALIROCUMAB

REACTIONS (5)
  - Blood glucose increased [None]
  - Dry mouth [None]
  - Chest discomfort [None]
  - Throat tightness [None]
  - Therapy cessation [None]

NARRATIVE: CASE EVENT DATE: 20231218
